FAERS Safety Report 25956931 (Version 1)
Quarter: 2025Q4

REPORT INFORMATION
  Report Type: Spontaneous
  Country: US (occurrence: None)
  Receive Date: 20251023
  Receipt Date: 20251023
  Transmission Date: 20260117
  Serious: Yes (Disabling)
  Sender: FDA-CTU
  Company Number: None

PATIENT
  Age: 47 Year
  Sex: Male
  Weight: 72 kg

DRUGS (1)
  1. GABAPENTIN [Suspect]
     Active Substance: GABAPENTIN

REACTIONS (10)
  - Therapeutic product effect decreased [None]
  - Feeling abnormal [None]
  - Withdrawal syndrome [None]
  - Night sweats [None]
  - Insomnia [None]
  - Tremor [None]
  - Irritability [None]
  - Hyposmia [None]
  - Sinusitis [None]
  - Neuropathy peripheral [None]

NARRATIVE: CASE EVENT DATE: 20201212
